FAERS Safety Report 24154278 (Version 1)
Quarter: 2024Q3

REPORT INFORMATION
  Report Type: Other
  Country: IT (occurrence: IT)
  Receive Date: 20240730
  Receipt Date: 20240730
  Transmission Date: 20241017
  Serious: Yes (Hospitalization, Other)
  Sender: BIONPHARMA
  Company Number: IT-Bion-013541

PATIENT
  Age: 15 Year
  Sex: Male

DRUGS (4)
  1. DEXAMETHASONE [Suspect]
     Active Substance: DEXAMETHASONE
     Indication: Hodgkin^s disease
     Dosage: 40MG
  2. BRENTUXIMAB VEDOTIN [Concomitant]
     Active Substance: BRENTUXIMAB VEDOTIN
     Indication: Hodgkin^s disease
  3. CISPLATIN [Concomitant]
     Active Substance: CISPLATIN
     Indication: Hodgkin^s disease
  4. CYTARABINE [Concomitant]
     Active Substance: CYTARABINE
     Indication: Hodgkin^s disease
     Dosage: 2 G/M2

REACTIONS (4)
  - Hepatotoxicity [Unknown]
  - Leukopenia [Unknown]
  - Thrombocytopenia [Unknown]
  - Anaemia [Unknown]
